FAERS Safety Report 4949471-2 (Version None)
Quarter: 2006Q1

REPORT INFORMATION
  Report Type: 
  Country: None (occurrence: None)
  Receive Date: 20060321
  Receipt Date: 20060310
  Transmission Date: 20060701
  Serious: Yes (Hospitalization)
  Sender: FDA-Public Use
  Company Number: PHHO2006BR04371

PATIENT
  Age: 72 Year
  Sex: Female

DRUGS (2)
  1. DIOVAN HCT [Suspect]
     Route: 048
  2. MONOCORDIL [Concomitant]

REACTIONS (2)
  - ANGINA PECTORIS [None]
  - HOT FLUSH [None]
